FAERS Safety Report 11276225 (Version 1)
Quarter: 2015Q3

REPORT INFORMATION
  Report Type: Spontaneous
  Country: BR (occurrence: BR)
  Receive Date: 20150716
  Receipt Date: 20150716
  Transmission Date: 20151125
  Serious: Yes (Other)
  Sender: FDA-Public Use
  Company Number: BR-PFIZER INC-2015227283

PATIENT
  Age: 72 Year
  Sex: Male
  Weight: 70 kg

DRUGS (8)
  1. LIPITOR [Suspect]
     Active Substance: ATORVASTATIN CALCIUM
     Indication: BLOOD CHOLESTEROL ABNORMAL
     Dosage: 40 MG, 1 TABLET OF 40MG A DAY
     Route: 048
     Dates: start: 20150622
  2. COMBIRON [Concomitant]
     Active Substance: ASCORBIC ACID\FERROUS SULFATE\FOLIC ACID\PYRIDOXINE HYDROCHLORIDE\RIBOFLAVIN\THIAMINE MONONITRATE
     Dosage: 1 DF, DAILY
     Dates: start: 20150703
  3. ANCORON [Concomitant]
     Active Substance: AMIODARONE HYDROCHLORIDE
     Indication: CARDIAC DISORDER
     Dosage: 2 DF, DAILY
     Dates: start: 20150627
  4. CUMADIN [Concomitant]
     Active Substance: WARFARIN SODIUM
     Indication: ANTICOAGULANT THERAPY
     Dosage: 1 DF, DAILY
     Dates: start: 20150627
  5. LASIX [Concomitant]
     Active Substance: FUROSEMIDE
     Indication: DIURETIC THERAPY
     Dosage: 1 DF, DAILY
     Dates: start: 2005
  6. STILNOX [Concomitant]
     Active Substance: ZOLPIDEM TARTRATE
     Indication: SLEEP DISORDER THERAPY
     Dosage: 1 DF, DAILY
     Dates: start: 20150701
  7. RIVOTRIL [Concomitant]
     Active Substance: CLONAZEPAM
     Indication: ANXIETY
     Dosage: 7 GTT, DAILY
     Dates: start: 201501
  8. PANTOZOL [Concomitant]
     Active Substance: PANTOPRAZOLE SODIUM
     Indication: ABDOMINAL DISCOMFORT
     Dosage: 1 DF, DAILY
     Dates: start: 20150622

REACTIONS (1)
  - Mitral valve disease [Unknown]

NARRATIVE: CASE EVENT DATE: 2015
